FAERS Safety Report 18334666 (Version 18)
Quarter: 2023Q1

REPORT INFORMATION
  Report Type: Spontaneous
  Country: US (occurrence: US)
  Receive Date: 20201001
  Receipt Date: 20230125
  Transmission Date: 20230417
  Serious: No
  Sender: FDA-Public Use
  Company Number: US-GLAXOSMITHKLINE-US2020AMR195662

PATIENT
  Sex: Female

DRUGS (13)
  1. ZEJULA [Suspect]
     Active Substance: NIRAPARIB
     Indication: Malignant peritoneal neoplasm
     Dosage: 200 MG, QD
     Route: 048
     Dates: start: 20200203
  2. ZEJULA [Suspect]
     Active Substance: NIRAPARIB
     Dosage: 200 MG, QD
     Route: 065
  3. ZEJULA [Suspect]
     Active Substance: NIRAPARIB
     Dosage: 200 MG, QD
     Route: 065
  4. ZEJULA [Suspect]
     Active Substance: NIRAPARIB
     Dosage: 200 MG, QD
  5. ZEJULA [Suspect]
     Active Substance: NIRAPARIB
     Dosage: 100 MG, BID
     Route: 048
     Dates: start: 20200204
  6. ZEJULA [Suspect]
     Active Substance: NIRAPARIB
     Dosage: 200 MG, QD
     Dates: start: 20200220
  7. ZEJULA [Suspect]
     Active Substance: NIRAPARIB
     Dosage: 200 MG, QD (200MG QPM)
  8. ZEJULA [Suspect]
     Active Substance: NIRAPARIB
     Dosage: 200 MG, QD
     Route: 048
  9. ZEJULA [Suspect]
     Active Substance: NIRAPARIB
     Dosage: 300 MG, QD
     Route: 048
     Dates: start: 20211204
  10. ZEJULA [Suspect]
     Active Substance: NIRAPARIB
     Dosage: 300 MG, QD
  11. ZEJULA [Suspect]
     Active Substance: NIRAPARIB
     Dosage: 300 MG, QD
  12. ZEJULA [Suspect]
     Active Substance: NIRAPARIB
     Dosage: 300 MG, QD (PM)
  13. TRULICITY [Concomitant]
     Active Substance: DULAGLUTIDE
     Indication: Product used for unknown indication
     Dosage: UNK

REACTIONS (28)
  - Decreased appetite [Unknown]
  - Feeling abnormal [Unknown]
  - Asthenia [Unknown]
  - Amnesia [Not Recovered/Not Resolved]
  - Fatigue [Unknown]
  - Back pain [Not Recovered/Not Resolved]
  - Sciatica [Unknown]
  - Nervous system disorder [Unknown]
  - Oversensing [Unknown]
  - Malaise [Unknown]
  - Nausea [Unknown]
  - Ill-defined disorder [Not Recovered/Not Resolved]
  - Rash [Unknown]
  - Memory impairment [Unknown]
  - Arthritis [Unknown]
  - Alopecia [Unknown]
  - Allergy to plants [Unknown]
  - Confusional state [Not Recovered/Not Resolved]
  - Gait disturbance [Not Recovered/Not Resolved]
  - Neck pain [Unknown]
  - Weight decreased [Unknown]
  - Constipation [Unknown]
  - Muscle spasms [Unknown]
  - Arthralgia [Unknown]
  - Tumour marker increased [Unknown]
  - Product dose omission in error [Unknown]
  - Product dose omission issue [Unknown]
  - Off label use [Unknown]
